FAERS Safety Report 5120954-8 (Version None)
Quarter: 2006Q4

REPORT INFORMATION
  Report Type: 
  Country: None (occurrence: None)
  Receive Date: 20061005
  Receipt Date: 20061005
  Transmission Date: 20070319
  Serious: No
  Sender: FDA-Public Use
  Company Number: None

PATIENT
  Age: 50 Year

DRUGS (1)
  1. OPTIRAY 320 [Suspect]
     Indication: COMPUTERISED TOMOGRAM
     Dosage: IV 100 ML
     Route: 042

REACTIONS (5)
  - COUGH [None]
  - ILL-DEFINED DISORDER [None]
  - LACRIMATION INCREASED [None]
  - OCULAR HYPERAEMIA [None]
  - SNEEZING [None]
